FAERS Safety Report 17749752 (Version 1)
Quarter: 2020Q2

REPORT INFORMATION
  Report Type: Spontaneous
  Country: US (occurrence: US)
  Receive Date: 20200505
  Receipt Date: 20200505
  Transmission Date: 20200714
  Serious: Yes (Death, Hospitalization)
  Sender: FDA-Public Use
  Company Number: None

PATIENT
  Age: 54 Year
  Sex: Female

DRUGS (1)
  1. AMBRISENTAN 10MG TABLETS 30/BO: 10MG [Suspect]
     Active Substance: AMBRISENTAN
     Indication: PULMONARY ARTERIAL HYPERTENSION
     Route: 048
     Dates: start: 20110929, end: 20200422

REACTIONS (6)
  - Dialysis [None]
  - Respiratory failure [None]
  - Acute kidney injury [None]
  - Pneumonia pseudomonal [None]
  - COVID-19 pneumonia [None]
  - Cardiogenic shock [None]

NARRATIVE: CASE EVENT DATE: 20200422
